FAERS Safety Report 5419144-0 (Version None)
Quarter: 2007Q3

REPORT INFORMATION
  Report Type: 
  Country: None (occurrence: None)
  Receive Date: 20070820
  Receipt Date: 20070808
  Transmission Date: 20080115
  Serious: Yes (Hospitalization)
  Sender: FDA-Public Use
  Company Number: PHHO2007US13185

PATIENT
  Age: 14 Year
  Sex: Female
  Weight: 39.9 kg

DRUGS (1)
  1. ZELNORM [Suspect]
     Dosage: 6 MG, BID
     Route: 048
     Dates: start: 20060801

REACTIONS (5)
  - ABDOMINAL PAIN [None]
  - LARGE INTESTINE PERFORATION [None]
  - POST PROCEDURAL COMPLICATION [None]
  - SURGERY [None]
  - VOMITING [None]
